FAERS Safety Report 7042389-3 (Version None)
Quarter: 2010Q4

REPORT INFORMATION
  Report Type: 
  Country: None (occurrence: None)
  Receive Date: 20101013
  Receipt Date: 20100510
  Transmission Date: 20110411
  Serious: No
  Sender: FDA-Public Use
  Company Number: US-ASTRAZENECA-2010SE21169

PATIENT
  Age: 71 Year
  Sex: Male
  Weight: 104.3 kg

DRUGS (1)
  1. SYMBICORT [Suspect]
     Dosage: 80/4.5, BID TOTAL DAILY DOSAGE - 320 MCG
     Route: 055

REACTIONS (3)
  - BREATH SOUNDS ABNORMAL [None]
  - COUGH [None]
  - DYSPNOEA [None]
